FAERS Safety Report 10176712 (Version 1)
Quarter: 2014Q2

REPORT INFORMATION
  Report Type: Spontaneous
  Country: US (occurrence: US)
  Receive Date: 20140516
  Receipt Date: 20140516
  Transmission Date: 20141212
  Serious: Yes (Hospitalization)
  Sender: FDA-Public Use
  Company Number: US-MYLANLABS-2014S1010677

PATIENT
  Sex: Female

DRUGS (1)
  1. NITROGLYCERIN TRANSDERMAL SYSTEM [Suspect]
     Route: 062

REACTIONS (1)
  - Investigation [Not Recovered/Not Resolved]
